FAERS Safety Report 9836735 (Version 8)
Quarter: 2015Q2

REPORT INFORMATION
  Report Type: Report from Study
  Country: CA (occurrence: CA)
  Receive Date: 20140123
  Receipt Date: 20150422
  Transmission Date: 20150821
  Serious: Yes (Hospitalization, Other)
  Sender: FDA-Public Use
  Company Number: PHHY2013CA150303

PATIENT
  Age: 69 Year
  Sex: Male

DRUGS (8)
  1. SANDOSTATIN LAR DEPOT [Suspect]
     Active Substance: OCTREOTIDE ACETATE
     Indication: NEUROENDOCRINE CARCINOMA METASTATIC
     Dosage: 30 MG, EVERY 28 DAYS
     Route: 030
  2. SANDOSTATIN [Suspect]
     Active Substance: OCTREOTIDE ACETATE
     Indication: NEUROENDOCRINE CARCINOMA METASTATIC
  3. SANDOSTATIN [Suspect]
     Active Substance: OCTREOTIDE ACETATE
     Indication: PANCREATIC NEUROENDOCRINE TUMOUR METASTATIC
     Dosage: 100 UG, TID
     Route: 058
     Dates: start: 20130916, end: 20130925
  4. SUTENT [Suspect]
     Active Substance: SUNITINIB MALATE
     Indication: PRODUCT USED FOR UNKNOWN INDICATION
     Dosage: UNK UKN, UNK
     Route: 065
     Dates: start: 20140106
  5. SANDOSTATIN LAR DEPOT [Suspect]
     Active Substance: OCTREOTIDE ACETATE
     Indication: PANCREATIC NEUROENDOCRINE TUMOUR METASTATIC
     Dosage: 30 MG, EVERY 4 WEEKS
     Route: 030
     Dates: start: 20130925
  6. SUTENT [Suspect]
     Active Substance: SUNITINIB MALATE
     Dosage: UNK UKN, UNK
     Route: 065
     Dates: start: 20140107
  7. SUTENT [Suspect]
     Active Substance: SUNITINIB MALATE
     Dosage: UNK UKN, UNK
     Route: 065
     Dates: start: 20140108
  8. SANDOSTATIN LAR DEPOT [Suspect]
     Active Substance: OCTREOTIDE ACETATE
     Dosage: 30 MG, EVERY 4 WEEKS
     Route: 030

REACTIONS (16)
  - Confusional state [Unknown]
  - Ammonia increased [Recovering/Resolving]
  - Hepatic encephalopathy [Unknown]
  - Tremor [Not Recovered/Not Resolved]
  - Blood pressure systolic increased [Unknown]
  - Fatigue [Not Recovered/Not Resolved]
  - Blood pressure decreased [Unknown]
  - Anxiety [Not Recovered/Not Resolved]
  - Cough [Unknown]
  - Coordination abnormal [Not Recovered/Not Resolved]
  - Daydreaming [Not Recovered/Not Resolved]
  - Cerebrovascular accident [Unknown]
  - Yawning [Unknown]
  - Blood pressure diastolic decreased [Unknown]
  - Hypersomnia [Not Recovered/Not Resolved]
  - Language disorder [Unknown]

NARRATIVE: CASE EVENT DATE: 20140131
